FAERS Safety Report 6868251-4 (Version None)
Quarter: 2010Q3

REPORT INFORMATION
  Report Type: 
  Country: None (occurrence: None)
  Receive Date: 20100722
  Receipt Date: 20080523
  Transmission Date: 20110219
  Serious: No
  Sender: FDA-Public Use
  Company Number: US-PFIZER INC-2008045216

PATIENT
  Sex: Female
  Weight: 65 kg

DRUGS (9)
  1. CHANTIX [Suspect]
     Indication: SMOKING CESSATION THERAPY
     Dates: start: 20080201, end: 20080301
  2. OMEPRAZOLE [Concomitant]
     Indication: SMOKING CESSATION THERAPY
  3. ZYRTEC [Concomitant]
  4. CELEBREX [Concomitant]
  5. FOLIC ACID [Concomitant]
  6. LOSARTAN POSTASSIUM [Concomitant]
  7. CITALOPRAM [Concomitant]
  8. METRONIDAZOLE [Concomitant]
  9. PREDNISONE [Concomitant]

REACTIONS (4)
  - HOSTILITY [None]
  - INTENTIONAL DRUG MISUSE [None]
  - MOOD ALTERED [None]
  - NAUSEA [None]
